FAERS Safety Report 16144212 (Version 1)
Quarter: 2019Q1

REPORT INFORMATION
  Report Type: Spontaneous
  Country: US (occurrence: US)
  Receive Date: 20190227
  Receipt Date: 20190227
  Transmission Date: 20190418
  Serious: No
  Sender: FDA-Public Use
  Company Number: None

PATIENT
  Age: 77 Year
  Sex: Male
  Weight: 83.92 kg

DRUGS (1)
  1. ENBREL [Suspect]
     Active Substance: ETANERCEPT
     Indication: PSORIASIS
     Dosage: INJECT 50MG SUBCUTANEOUSLY TWO TIMES A WEEK 72 - 96 HOURS APART FOR 3 MONTHS AS DIRECTED
     Route: 058
     Dates: start: 201705

REACTIONS (1)
  - Pneumonia [None]
